FAERS Safety Report 9937325 (Version 3)
Quarter: 2014Q2

REPORT INFORMATION
  Report Type: Report from Study
  Country: FR (occurrence: FR)
  Receive Date: 20140302
  Receipt Date: 20140417
  Transmission Date: 20141212
  Serious: Yes (Hospitalization)
  Sender: FDA-Public Use
  Company Number: FR-ROCHE-1353407

PATIENT
  Age: 64 Year
  Sex: Male

DRUGS (10)
  1. RITUXIMAB [Suspect]
     Indication: MANTLE CELL LYMPHOMA
     Route: 041
     Dates: start: 20120710, end: 20130827
  2. BACTRIM [Concomitant]
  3. LEDERFOLINE [Concomitant]
  4. ZELITREX [Concomitant]
  5. MELPHALAN [Concomitant]
  6. ETOPOSIDE [Concomitant]
  7. CARMUSTINE [Concomitant]
  8. CISPLATIN [Concomitant]
  9. CYTARABINE [Concomitant]
  10. DEXAMETHASONE [Concomitant]

REACTIONS (1)
  - Peripheral T-cell lymphoma unspecified [Not Recovered/Not Resolved]
